FAERS Safety Report 13427095 (Version 4)
Quarter: 2017Q3

REPORT INFORMATION
  Report Type: Spontaneous
  Country: US (occurrence: US)
  Receive Date: 20170411
  Receipt Date: 20170915
  Transmission Date: 20171127
  Serious: Yes (Hospitalization, Disabling)
  Sender: FDA-Public Use
  Company Number: US-ASTELLAS-2017US013540

PATIENT
  Sex: Female
  Weight: 50 kg

DRUGS (1)
  1. TARCEVA [Suspect]
     Active Substance: ERLOTINIB HYDROCHLORIDE
     Indication: LUNG NEOPLASM MALIGNANT
     Route: 048
     Dates: start: 20151015

REACTIONS (6)
  - Gastrointestinal haemorrhage [Unknown]
  - Diarrhoea [Unknown]
  - Trichorrhexis [Unknown]
  - Chronic obstructive pulmonary disease [Not Recovered/Not Resolved]
  - Nail ridging [Unknown]
  - Rash [Recovered/Resolved]
